FAERS Safety Report 11297890 (Version 1)
Quarter: 2015Q3

REPORT INFORMATION
  Report Type: Spontaneous
  Country: US (occurrence: US)
  Receive Date: 20150722
  Receipt Date: 20150722
  Transmission Date: 20151125
  Serious: No
  Sender: FDA-Public Use
  Company Number: US-ELI_LILLY_AND_COMPANY-US201008001378

PATIENT
  Sex: Male

DRUGS (2)
  1. DDAVP [Concomitant]
     Active Substance: DESMOPRESSIN ACETATE
     Route: 045
  2. HUMATROPE [Suspect]
     Active Substance: SOMATROPIN
     Dosage: 1.2 MG, UNKNOWN
     Dates: start: 200904

REACTIONS (7)
  - Pain [Unknown]
  - Headache [Unknown]
  - Arthritis [Unknown]
  - Incorrect dose administered [Unknown]
  - Drug dose omission [Unknown]
  - Irritability [Unknown]
  - Stress [Unknown]

NARRATIVE: CASE EVENT DATE: 201007
